FAERS Safety Report 5103090-6 (Version None)
Quarter: 2006Q3

REPORT INFORMATION
  Report Type: 
  Country: None (occurrence: None)
  Receive Date: 20060905
  Receipt Date: 20060830
  Transmission Date: 20061208
  Serious: Yes (Other)
  Sender: FDA-Public Use
  Company Number: GBWYE314921JUL06

PATIENT
  Age: 26 Year
  Sex: Female

DRUGS (1)
  1. VENLAFAXIINE HCL [Suspect]

REACTIONS (3)
  - DRUG WITHDRAWAL SYNDROME [None]
  - HYPERACUSIS [None]
  - PAIN [None]
